FAERS Safety Report 18889633 (Version 2)
Quarter: 2021Q1

REPORT INFORMATION
  Report Type: Spontaneous
  Country: FR (occurrence: FR)
  Receive Date: 20210213
  Receipt Date: 20210311
  Transmission Date: 20210420
  Serious: Yes (Hospitalization, Other)
  Sender: FDA-Public Use
  Company Number: FR-SA-2021SA050284

PATIENT
  Age: 89 Year
  Sex: Male
  Weight: 61 kg

DRUGS (14)
  1. FUROSEMIDE. [Concomitant]
     Active Substance: FUROSEMIDE
     Dosage: 40 MG, QD
  2. APIXABAN [Concomitant]
     Active Substance: APIXABAN
     Dosage: 5 MG, BID
  3. EUPRESSYL [URAPIDIL] [Concomitant]
     Active Substance: URAPIDIL
     Dosage: UNK UNK, PRN
  4. METEOSPASMYL (ALVERINE CITRATE\DIMETHICONE) [Concomitant]
     Active Substance: ALVERINE CITRATE\DIMETHICONE
     Dosage: UNK, TID
  5. FUROSEMIDE. [Concomitant]
     Active Substance: FUROSEMIDE
     Dosage: UNK UNK, BID
     Route: 048
  6. TWYNSTA [Concomitant]
     Active Substance: AMLODIPINE BESYLATE\TELMISARTAN
     Dosage: UNK
     Route: 048
  7. FORLAX [Concomitant]
     Active Substance: POLYETHYLENE GLYCOL 4000
     Dosage: UNK, QD
  8. DUPIXENT [Suspect]
     Active Substance: DUPILUMAB
     Indication: PRURIGO
     Dosage: 600 MG, 1X
     Route: 065
     Dates: start: 202010, end: 202010
  9. TELMISARTAN. [Concomitant]
     Active Substance: TELMISARTAN
     Dosage: UNK UNK, QD
  10. AVODART [Concomitant]
     Active Substance: DUTASTERIDE
     Dosage: UNK UNK, QD
  11. INNOVAIR [Concomitant]
     Active Substance: BECLOMETHASONE DIPROPIONATE\FORMOTEROL
     Dosage: 2 DF, QD
  12. DUPIXENT [Suspect]
     Active Substance: DUPILUMAB
     Dosage: 300 MG, Q15D
     Route: 065
     Dates: start: 202010
  13. LANSOPRAZOLE. [Concomitant]
     Active Substance: LANSOPRAZOLE
     Dosage: 15 MG, QD
  14. AVAMYS [Concomitant]
     Active Substance: FLUTICASONE FUROATE
     Dosage: 1 VAPORIZATION IN EACH NOSTRIL, QD
     Route: 055

REACTIONS (10)
  - Haematoma [Unknown]
  - Asthenia [Unknown]
  - Folate deficiency [Unknown]
  - Dyspnoea [Unknown]
  - Pulmonary embolism [Recovering/Resolving]
  - Systemic inflammatory response syndrome [Recovering/Resolving]
  - Head injury [Unknown]
  - Lung disorder [Unknown]
  - Fall [Unknown]
  - Vitamin B12 deficiency [Unknown]

NARRATIVE: CASE EVENT DATE: 2020
